FAERS Safety Report 22622282 (Version 5)
Quarter: 2025Q2

REPORT INFORMATION
  Report Type: Report from Study
  Country: TR (occurrence: None)
  Receive Date: 20230620
  Receipt Date: 20250407
  Transmission Date: 20250717
  Serious: Yes (Hospitalization)
  Sender: INCYTE
  Company Number: TR-002147023-NVSC2023TR134192

PATIENT
  Age: 82 Year

DRUGS (2)
  1. RUXOLITINIB [Suspect]
     Active Substance: RUXOLITINIB
     Indication: Myelofibrosis
     Dosage: 10 MG, BID
  2. RUXOLITINIB [Suspect]
     Active Substance: RUXOLITINIB
     Route: 065

REACTIONS (3)
  - Constipation [Unknown]
  - Diverticulitis [Recovered/Resolved]
  - Pneumonia [Recovered/Resolved]
